FAERS Safety Report 5276338-5 (Version None)
Quarter: 2007Q1

REPORT INFORMATION
  Report Type: 
  Country: None (occurrence: None)
  Receive Date: 20070326
  Receipt Date: 20070314
  Transmission Date: 20070707
  Serious: Yes (Other)
  Sender: FDA-Public Use
  Company Number: NL-PFIZER INC-2007020597

PATIENT

DRUGS (7)
  1. NIFEDIPINE [Suspect]
     Dosage: DAILY DOSE:160MG
     Route: 064
  2. DALTEPARIN SODIUM [Suspect]
     Route: 064
  3. AMOXICILLIN [Suspect]
     Route: 064
  4. FUROSEMIDE [Suspect]
     Route: 064
  5. INDOMETHACIN [Suspect]
     Route: 064
  6. ATOSIBAN [Suspect]
     Route: 064
  7. CORTICOSTEROIDS [Suspect]
     Route: 064

REACTIONS (2)
  - DRUG EXPOSURE DURING PREGNANCY [None]
  - PREMATURE BABY [None]
